FAERS Safety Report 8211684 (Version 3)
Quarter: 2012Q4

REPORT INFORMATION
  Report Type: Spontaneous
  Country: US (occurrence: None)
  Receive Date: 20111020
  Receipt Date: 20120907
  Transmission Date: 20130627
  Serious: Yes (Other)
  Sender: FDA-Public Use
  Company Number: 2011MA014737

PATIENT
  Sex: Female
  Weight: 72.58 kg

DRUGS (13)
  1. METOCLOPRAMIDE [Suspect]
     Indication: ACID REFLUX
     Route: 048
     Dates: start: 201001, end: 201008
  2. NEXIUM [Concomitant]
  3. PROTONIX [Concomitant]
  4. BUSPAR [Concomitant]
  5. SLEEP MEDICATIONS [Concomitant]
  6. ALPRAZOLAM [Concomitant]
  7. FLUCONAZOLE [Concomitant]
  8. LEXAPRO [Concomitant]
  9. LUNESTA [Concomitant]
  10. PROPOXYPHENE-N [Concomitant]
  11. ROPINIROLE [Concomitant]
  12. SEASONIQUE [Concomitant]
  13. SULFAMETHOXAZOLE/TRIMETHOPRIM [Concomitant]

REACTIONS (7)
  - Tardive dyskinesia [None]
  - Economic problem [None]
  - Emotional disorder [None]
  - Injury [None]
  - Gastrooesophageal reflux disease [None]
  - Restless legs syndrome [None]
  - Dyspepsia [None]
